FAERS Safety Report 13627597 (Version 1)
Quarter: 2017Q2

REPORT INFORMATION
  Report Type: Spontaneous
  Country: US (occurrence: US)
  Receive Date: 20170608
  Receipt Date: 20170608
  Transmission Date: 20170830
  Serious: Yes (Hospitalization)
  Sender: FDA-Public Use
  Company Number: None

PATIENT
  Age: 78 Year
  Sex: Female
  Weight: 90.72 kg

DRUGS (10)
  1. DESLORATION [Concomitant]
  2. RANITIDINE. [Concomitant]
     Active Substance: RANITIDINE
  3. ASMANEX [Concomitant]
     Active Substance: MOMETASONE FUROATE
  4. IRBESARTAN. [Concomitant]
     Active Substance: IRBESARTAN
  5. HYDROCHLOROTHIAZIDE. [Concomitant]
     Active Substance: HYDROCHLOROTHIAZIDE
  6. ASPIRIN. [Concomitant]
     Active Substance: ASPIRIN
  7. NASONEX [Concomitant]
     Active Substance: MOMETASONE FUROATE
  8. METFORMIN [Concomitant]
     Active Substance: METFORMIN HYDROCHLORIDE
  9. PREDNISOLONE ACETATE OPTHALMIC SUSPENSION USP [Concomitant]
  10. ILEVRO [Suspect]
     Active Substance: NEPAFENAC
     Indication: CATARACT
     Dosage: FREQUENCY - 1 A DAY?ROUTE - EYE RIGHT
     Route: 047
     Dates: start: 20170228

REACTIONS (1)
  - Blood pressure increased [None]

NARRATIVE: CASE EVENT DATE: 20170501
